FAERS Safety Report 6901664-0 (Version None)
Quarter: 2010Q3

REPORT INFORMATION
  Report Type: 
  Country: None (occurrence: None)
  Receive Date: 20100803
  Receipt Date: 20100803
  Transmission Date: 20110219
  Serious: Yes (Hospitalization)
  Sender: FDA-Public Use
  Company Number: VE-ABBOTT-10P-178-0660362-00

PATIENT
  Age: 84 Year
  Sex: Female

DRUGS (2)
  1. HUMIRA [Suspect]
     Indication: SPINAL OSTEOARTHRITIS
     Route: 058
     Dates: start: 20100301, end: 20100501
  2. ISONIACIDE [Concomitant]
     Indication: TUBERCULIN TEST POSITIVE
     Route: 065

REACTIONS (7)
  - CONTUSION [None]
  - DECREASED APPETITE [None]
  - DEHYDRATION [None]
  - HAEMOGLOBIN DECREASED [None]
  - LEUKOCYTOSIS [None]
  - PYREXIA [None]
  - RENAL FAILURE [None]
